FAERS Safety Report 9055485 (Version 1)
Quarter: 2013Q1

REPORT INFORMATION
  Report Type: Spontaneous
  Country: US (occurrence: US)
  Receive Date: 20130206
  Receipt Date: 20130206
  Transmission Date: 20140127
  Serious: No
  Sender: FDA-Public Use
  Company Number: US-ASTRAZENECA-2013SE07254

PATIENT
  Age: 47 Year
  Sex: Female
  Weight: 81.2 kg

DRUGS (7)
  1. NEXIUM [Suspect]
     Route: 048
  2. OMEPRAZOLE [Suspect]
     Indication: GASTROOESOPHAGEAL REFLUX DISEASE
     Route: 048
     Dates: start: 2012
  3. XANAX [Concomitant]
     Indication: ANXIETY
  4. BACLOFEN [Concomitant]
     Indication: MUSCLE SPASMS
  5. CELEXA [Concomitant]
     Indication: ANXIETY
  6. PLAVIX [Concomitant]
     Indication: ANTIPLATELET THERAPY
  7. PERCOCET [Concomitant]
     Indication: PAIN

REACTIONS (3)
  - Throat irritation [Not Recovered/Not Resolved]
  - Gallbladder pain [Not Recovered/Not Resolved]
  - Drug ineffective [Not Recovered/Not Resolved]
